FAERS Safety Report 5268099-0 (Version None)
Quarter: 2007Q1

REPORT INFORMATION
  Report Type: 
  Country: None (occurrence: None)
  Receive Date: 20070319
  Receipt Date: 20070312
  Transmission Date: 20070707
  Serious: Yes (Life-Threatening, Hospitalization)
  Sender: FDA-Public Use
  Company Number: PHRM2007FR01025

PATIENT
  Age: 76 Year
  Sex: Male
  Weight: 58 kg

DRUGS (2)
  1. TEGRETOL [Suspect]
     Indication: PAIN
     Dosage: 200 MG, TID
     Route: 048
     Dates: start: 20070115, end: 20070209
  2. COAPROVEL [Concomitant]
     Indication: HYPERTENSION
     Route: 048

REACTIONS (8)
  - AGRANULOCYTOSIS [None]
  - ASTHENIA [None]
  - CHRONIC LYMPHOCYTIC LEUKAEMIA [None]
  - CREPITATIONS [None]
  - GRANULOCYTES MATURATION ARREST [None]
  - LYMPHOCYTOSIS [None]
  - LYMPHOID TISSUE HYPERPLASIA [None]
  - PYREXIA [None]
